FAERS Safety Report 19237328 (Version 2)
Quarter: 2021Q2

REPORT INFORMATION
  Report Type: Report from Study
  Country: BD (occurrence: BD)
  Receive Date: 20210510
  Receipt Date: 20210526
  Transmission Date: 20210717
  Serious: Yes (Hospitalization, Other)
  Sender: FDA-Public Use
  Company Number: NVSC2021BD101393

PATIENT
  Age: 36 Year
  Sex: Male
  Weight: 82 kg

DRUGS (4)
  1. COSENTYX [Suspect]
     Active Substance: SECUKINUMAB
     Dosage: 300 MG, QMO
     Route: 065
  2. COSENTYX [Suspect]
     Active Substance: SECUKINUMAB
     Dosage: 300 MG (6 DAYS INTERVAL, 5 TIMES)
     Route: 065
     Dates: start: 202012
  3. COSENTYX [Suspect]
     Active Substance: SECUKINUMAB
     Dosage: 300 MG (15 DAYS INTERVAL, 2 TIMES)
     Route: 065
  4. COSENTYX [Suspect]
     Active Substance: SECUKINUMAB
     Indication: PSORIASIS
     Dosage: 150 MG
     Route: 065

REACTIONS (2)
  - Abdominal pain [Recovering/Resolving]
  - Vitamin D deficiency [Unknown]

NARRATIVE: CASE EVENT DATE: 20210508
